FAERS Safety Report 17312598 (Version 5)
Quarter: 2020Q4

REPORT INFORMATION
  Report Type: Report from Study
  Country: US (occurrence: US)
  Receive Date: 20200123
  Receipt Date: 20201007
  Transmission Date: 20210113
  Serious: Yes (Hospitalization, Other)
  Sender: FDA-Public Use
  Company Number: NVSC2020US014308

PATIENT
  Age: 2 Month
  Sex: Male

DRUGS (1)
  1. ZOLGENSMA [Suspect]
     Active Substance: ONASEMNOGENE ABEPARVOVEC-XIOI
     Indication: SPINAL MUSCULAR ATROPHY
     Dosage: UNK, ONCE/SINGLE
     Route: 042
     Dates: start: 20200117, end: 20200117

REACTIONS (8)
  - Heart rate increased [Unknown]
  - Pyrexia [Unknown]
  - Sleep disorder [Unknown]
  - Seizure [Unknown]
  - Pneumonia [Unknown]
  - Dyspnoea [Unknown]
  - Choking [Unknown]
  - Rash papular [Unknown]

NARRATIVE: CASE EVENT DATE: 20200117
